FAERS Safety Report 9725467 (Version 1)
Quarter: 2013Q4

REPORT INFORMATION
  Report Type: Spontaneous
  Country: US (occurrence: US)
  Receive Date: 20131203
  Receipt Date: 20131203
  Transmission Date: 20140711
  Serious: No
  Sender: FDA-Public Use
  Company Number: US-BAYER-2013-147352

PATIENT
  Age: 52 Year
  Sex: Female
  Weight: 115.19 kg

DRUGS (2)
  1. ALEVE CAPLET [Suspect]
     Route: 048
  2. MONTELUKAST [Concomitant]
     Dosage: 10 MG, UNK

REACTIONS (1)
  - Extra dose administered [None]
